FAERS Safety Report 19042234 (Version 1)
Quarter: 2021Q1

REPORT INFORMATION
  Report Type: Spontaneous
  Country: US (occurrence: US)
  Receive Date: 20210322
  Receipt Date: 20210322
  Transmission Date: 20210420
  Serious: No
  Sender: FDA-Public Use
  Company Number: US-ASTRAZENECA-2021A176665

PATIENT
  Sex: Male

DRUGS (1)
  1. PRILOSEC OTC [Suspect]
     Active Substance: OMEPRAZOLE MAGNESIUM
     Route: 065

REACTIONS (6)
  - Rash [Unknown]
  - Cardiac disorder [Unknown]
  - Pain [Unknown]
  - Peripheral swelling [Unknown]
  - Dyspepsia [Unknown]
  - Vision blurred [Unknown]
